FAERS Safety Report 13805920 (Version 1)
Quarter: 2017Q3

REPORT INFORMATION
  Report Type: Report from Study
  Country: BR (occurrence: BR)
  Receive Date: 20170728
  Receipt Date: 20170728
  Transmission Date: 20171127
  Serious: Yes (Other)
  Sender: FDA-Public Use
  Company Number: PHHY2017BR107528

PATIENT
  Sex: Male
  Weight: 61 kg

DRUGS (1)
  1. GILENYA [Suspect]
     Active Substance: FINGOLIMOD HYDROCHLORIDE
     Indication: MULTIPLE SCLEROSIS
     Dosage: 0.5 MG, QD
     Route: 048
     Dates: start: 201510

REACTIONS (7)
  - Anxiety [Unknown]
  - Dysphemia [Unknown]
  - Nervousness [Unknown]
  - Weight decreased [Unknown]
  - Tremor [Unknown]
  - Rebound effect [Not Recovered/Not Resolved]
  - Speech disorder [Unknown]
